FAERS Safety Report 24017378 (Version 2)
Quarter: 2024Q2

REPORT INFORMATION
  Report Type: Report from Study
  Country: US (occurrence: US)
  Receive Date: 20240627
  Receipt Date: 20240628
  Transmission Date: 20240717
  Serious: Yes (Hospitalization)
  Sender: FDA-Public Use
  Company Number: US-ROCHE-10000009385

PATIENT
  Sex: Male
  Weight: 70.31 kg

DRUGS (2)
  1. OCREVUS [Suspect]
     Active Substance: OCRELIZUMAB
     Indication: Secondary progressive multiple sclerosis
     Dosage: DATE OF TREATMENT: /DEC/2023
     Route: 042
     Dates: start: 202103
  2. METHOTREXATE [Concomitant]
     Active Substance: METHOTREXATE

REACTIONS (1)
  - Urinary tract infection [Recovered/Resolved]
